FAERS Safety Report 7161756-0 (Version None)
Quarter: 2010Q4

REPORT INFORMATION
  Report Type: 
  Country: None (occurrence: None)
  Receive Date: 20101215
  Receipt Date: 20101201
  Transmission Date: 20110411
  Serious: Yes (Other)
  Sender: FDA-Public Use
  Company Number: PHHY2010DE64299

PATIENT
  Sex: Male
  Weight: 91 kg

DRUGS (6)
  1. EXFORGE HCT [Suspect]
     Indication: HYPERTENSION
     Dosage: 10/160/25  ONCE DAILY
     Route: 048
     Dates: start: 20080703, end: 20100809
  2. HUMALOG [Concomitant]
  3. METAHEXAL 100 [Concomitant]
  4. LANTUS [Concomitant]
  5. SIMVASTATIN [Concomitant]
  6. FALITHROM [Concomitant]

REACTIONS (5)
  - GINGIVAL BLEEDING [None]
  - GINGIVAL HYPERPLASIA [None]
  - LIP SWELLING [None]
  - RASH [None]
  - WEIGHT INCREASED [None]
